FAERS Safety Report 19816335 (Version 1)
Quarter: 2021Q3

REPORT INFORMATION
  Report Type: Spontaneous
  Country: SE (occurrence: SE)
  Receive Date: 20210910
  Receipt Date: 20210910
  Transmission Date: 20211014
  Serious: Yes (Other)
  Sender: FDA-Public Use
  Company Number: SE-SA-2021SA295731

PATIENT
  Age: 78 Year
  Sex: Male

DRUGS (1)
  1. DRONEDARONE [Suspect]
     Active Substance: DRONEDARONE
     Dosage: UNK
     Dates: start: 2019, end: 202108

REACTIONS (4)
  - Restless legs syndrome [Recovering/Resolving]
  - Paraesthesia [Recovering/Resolving]
  - Polyneuropathy [Recovering/Resolving]
  - Condition aggravated [Recovering/Resolving]

NARRATIVE: CASE EVENT DATE: 2021
